FAERS Safety Report 10472979 (Version 1)
Quarter: 2014Q3

REPORT INFORMATION
  Report Type: Spontaneous
  Country: ES (occurrence: ES)
  Receive Date: 20140924
  Receipt Date: 20140924
  Transmission Date: 20150326
  Serious: Yes (Hospitalization)
  Sender: FDA-Public Use
  Company Number: PHHY2014ES123810

PATIENT
  Age: 82 Year
  Sex: Male

DRUGS (4)
  1. METHOTREXATE [Suspect]
     Active Substance: METHOTREXATE
     Indication: RHEUMATOID ARTHRITIS
     Dosage: 7.5 MG, UNK
     Route: 048
  2. FOLINIC ACID [Concomitant]
     Active Substance: LEUCOVORIN
     Dosage: 1 DF, QW
  3. METHOTREXATE [Suspect]
     Active Substance: METHOTREXATE
     Dosage: 7.5 MG, UNK
     Route: 048
  4. FOLINIC ACID [Concomitant]
     Active Substance: LEUCOVORIN
     Route: 042

REACTIONS (17)
  - Melaena [Recovered/Resolved]
  - Pulmonary sepsis [Recovered/Resolved]
  - Febrile bone marrow aplasia [Recovered/Resolved]
  - Malaise [Recovered/Resolved]
  - Petechiae [Recovered/Resolved]
  - Mouth haemorrhage [Recovered/Resolved]
  - Atrial fibrillation [Recovered/Resolved]
  - Toxicity to various agents [Recovered/Resolved]
  - Arrhythmia [Recovered/Resolved]
  - Haemorrhage [Recovered/Resolved]
  - Rales [Recovered/Resolved]
  - Lung infiltration [Recovered/Resolved]
  - Pancytopenia [Recovered/Resolved]
  - Aphthous stomatitis [Recovered/Resolved]
  - Mucosal inflammation [Recovered/Resolved]
  - Crepitations [Recovered/Resolved]
  - Pleural effusion [Recovered/Resolved]
